FAERS Safety Report 6121414-8 (Version None)
Quarter: 2009Q1

REPORT INFORMATION
  Report Type: 
  Country: None (occurrence: None)
  Receive Date: 20090313
  Receipt Date: 20090309
  Transmission Date: 20090719
  Serious: Yes (Hospitalization)
  Sender: FDA-Public Use
  Company Number: 200912881GPV

PATIENT
  Age: 60 Year
  Sex: Male

DRUGS (16)
  1. ZEVALIN [Suspect]
     Indication: B-CELL LYMPHOMA
     Dosage: INTRAVENOUS
     Route: 042
     Dates: start: 20081017, end: 20081017
  2. YTRACIS (YTTRIUM (90 Y) CHLORIDE) [Suspect]
     Indication: NON-HODGKIN'S LYMPHOMA
     Dosage: INTRAVENOUS
     Route: 042
     Dates: start: 20081017, end: 20081017
  3. FLUDARABINE PHOSPHATE [Suspect]
     Indication: B-CELL LYMPHOMA
  4. RITUXIMAB (RITUXIMAB) [Suspect]
     Indication: NON-HODGKIN'S LYMPHOMA
     Dosage: 430 MG INTRAVENOUS
     Route: 042
     Dates: start: 20081010, end: 20081010
  5. RITUXIMAB (RITUXIMAB) [Suspect]
     Indication: NON-HODGKIN'S LYMPHOMA
     Dosage: 430 MG INTRAVENOUS
     Route: 042
     Dates: start: 20081017, end: 20081017
  6. MELFALAN (MELPHALAN) [Suspect]
     Indication: B-CELL LYMPHOMA
  7. POSACONAZOLE [Concomitant]
  8. LORAZEPAM [Concomitant]
  9. ACFOL (FOLIC ACID) [Concomitant]
  10. HIDROPOLIVIT [Concomitant]
  11. CYCLOSPORINE [Concomitant]
  12. SEPTRIN FORTE [Concomitant]
  13. CYCLOPHOSPHAMIDE [Concomitant]
  14. ALLOPURINOL [Concomitant]
  15. VALGANCICLOVIR HCL [Concomitant]
  16. PENTAMIDINE [Concomitant]

REACTIONS (3)
  - ABDOMINAL PAIN [None]
  - DIARRHOEA [None]
  - GRAFT VERSUS HOST DISEASE [None]
